FAERS Safety Report 7730886-4 (Version None)
Quarter: 2011Q3

REPORT INFORMATION
  Report Type: 
  Country: None (occurrence: None)
  Receive Date: 20110906
  Receipt Date: 20110830
  Transmission Date: 20111222
  Serious: Yes (Disabling)
  Sender: FDA-Public Use
  Company Number: BR-PFIZER INC-2011201986

PATIENT
  Age: 67 Year
  Sex: Female

DRUGS (2)
  1. LYRICA [Suspect]
     Indication: PAIN
     Dosage: 75 MG (ONE CAPSULE), 1X/DAY
     Route: 048
     Dates: start: 20110315, end: 20110501
  2. CALCIUM [Concomitant]
     Dosage: UNK

REACTIONS (3)
  - DYSSTASIA [None]
  - MALAISE [None]
  - FEELING ABNORMAL [None]
